FAERS Safety Report 4652043-0 (Version None)
Quarter: 2005Q2

REPORT INFORMATION
  Report Type: 
  Country: None (occurrence: None)
  Receive Date: 20050502
  Receipt Date: 20050425
  Transmission Date: 20051028
  Serious: Yes (Disabling)
  Sender: FDA-Public Use
  Company Number: 2003041194

PATIENT
  Age: 47 Year
  Sex: Female

DRUGS (8)
  1. LIPITOR [Suspect]
     Indication: BLOOD CHOLESTEROL
     Dosage: 20 MG 1 IN 1 D
     Dates: start: 20000401, end: 20010101
  2. COLESEVELAM HYDROCHLORIDE (COLESEVALAM HYDROCHLORIDE) [Suspect]
     Indication: BLOOD CHOLESTEROL
     Dosage: 2 IN 1 D
     Dates: start: 20010215
  3. CALCIUM (CALCIUM) [Concomitant]
  4. IBUPROFEN [Concomitant]
  5. FERROUS SULFATE TAB [Concomitant]
  6. PROTEIN SUPPLEMENTS (PROTEIN SUPPLEMENTS) [Concomitant]
  7. ASPIRIN [Concomitant]
  8. SIMVASTATIN [Concomitant]

REACTIONS (51)
  - ABASIA [None]
  - ALCOHOL USE [None]
  - ANISOCYTOSIS [None]
  - ASPARTATE AMINOTRANSFERASE DECREASED [None]
  - ASTHENIA [None]
  - BACK PAIN [None]
  - BLADDER DISORDER [None]
  - BLOOD CHLORIDE INCREASED [None]
  - BLOOD CHOLESTEROL INCREASED [None]
  - BONE DISORDER [None]
  - BREAST PAIN [None]
  - CARBON DIOXIDE DECREASED [None]
  - CHEST PAIN [None]
  - DENTAL CARIES [None]
  - DENTAL EXAMINATION ABNORMAL [None]
  - DYSPEPSIA [None]
  - ELECTROCARDIOGRAM ST SEGMENT ABNORMAL [None]
  - GASTROINTESTINAL MOTILITY DISORDER [None]
  - GINGIVAL DISORDER [None]
  - HAEMATOCRIT DECREASED [None]
  - HAEMATURIA [None]
  - HAEMOGLOBIN DECREASED [None]
  - HIGH DENSITY LIPOPROTEIN INCREASED [None]
  - HYPOCHROMASIA [None]
  - INJURY [None]
  - INSOMNIA [None]
  - JOINT STIFFNESS [None]
  - LABORATORY TEST ABNORMAL [None]
  - LOW DENSITY LIPOPROTEIN INCREASED [None]
  - MEAN CELL VOLUME DECREASED [None]
  - MENORRHAGIA [None]
  - MICROCYTOSIS [None]
  - MUSCLE INJURY [None]
  - MUSCLE SPASMS [None]
  - MUSCULOSKELETAL PAIN [None]
  - MYOPATHY [None]
  - MYOSITIS [None]
  - NEPHROLITHIASIS [None]
  - PAIN [None]
  - PAIN IN EXTREMITY [None]
  - PHOTOSENSITIVITY REACTION [None]
  - POLLAKIURIA [None]
  - PYREXIA [None]
  - RASH [None]
  - RED BLOOD CELL TARGET CELLS PRESENT [None]
  - RED CELL DISTRIBUTION WIDTH INCREASED [None]
  - SHOULDER PAIN [None]
  - SPECIFIC GRAVITY URINE DECREASED [None]
  - SPINAL OSTEOARTHRITIS [None]
  - URINARY SEDIMENT PRESENT [None]
  - WHITE BLOOD CELLS URINE POSITIVE [None]
